FAERS Safety Report 6700473-5 (Version None)
Quarter: 2010Q2

REPORT INFORMATION
  Report Type: 
  Country: None (occurrence: None)
  Receive Date: 20100428
  Receipt Date: 20100419
  Transmission Date: 20101027
  Serious: Yes (Other)
  Sender: FDA-Public Use
  Company Number: GXKR2010US04404

PATIENT
  Age: 79 Year
  Sex: Male

DRUGS (8)
  1. WARFARIN SODIUM [Suspect]
     Dosage: 5 MG DAILY ON MONDAY AND FRIDAY AND 2.5 MG ON ALL OTHER DAYS
  2. WARFARIN SODIUM [Interacting]
     Dosage: DOSE REDUCTION TO 5 MG ONCE WEEKLY AND 2.5 MG ALL OTHER DAYS WAS MADE
  3. GRIFRON-PRO MAITAKE D -FRACTION [Interacting]
     Dosage: 1 DROP/KG IN 3 DIVIDED DOSES
  4. DILTIAZEM HCL [Concomitant]
  5. HYDROMORPHONE HCL [Concomitant]
  6. TAMSULOSIN HCL [Concomitant]
  7. SIMVASTATIN [Concomitant]
  8. ESZOPICLONE [Concomitant]

REACTIONS (2)
  - DRUG INTERACTION [None]
  - INTERNATIONAL NORMALISED RATIO INCREASED [None]
